FAERS Safety Report 17250515 (Version 8)
Quarter: 2020Q4

REPORT INFORMATION
  Report Type: Report from Study
  Country: US (occurrence: US)
  Receive Date: 20200109
  Receipt Date: 20201219
  Transmission Date: 20210113
  Serious: Yes (Hospitalization, Other)
  Sender: FDA-Public Use
  Company Number: US-SHIRE-US202000360

PATIENT
  Age: 67 Year
  Sex: Male
  Weight: 77 kg

DRUGS (16)
  1. TEDUGLUTIDE [Suspect]
     Active Substance: TEDUGLUTIDE
     Indication: DIARRHOEA
     Dosage: 0.3850 UNIT UNK, 1X/DAY:QD
     Route: 058
     Dates: start: 20171120
  2. TEDUGLUTIDE [Suspect]
     Active Substance: TEDUGLUTIDE
     Indication: SHORT-BOWEL SYNDROME
     Dosage: 3.8 MILLIGRAM, 5/WEEK
     Route: 058
     Dates: start: 20171107
  3. TEDUGLUTIDE [Suspect]
     Active Substance: TEDUGLUTIDE
     Dosage: 3.8 MILLIGRAM,5/WEEK
     Route: 058
  4. TEDUGLUTIDE [Suspect]
     Active Substance: TEDUGLUTIDE
     Indication: MALABSORPTION
     Dosage: 3.8 MILLIGRAM, FIVE TIMES WEEKLY
     Route: 058
     Dates: start: 20171205
  5. TEDUGLUTIDE [Suspect]
     Active Substance: TEDUGLUTIDE
     Indication: DIARRHOEA
     Dosage: 0.3850 UNIT UNK, 1X/DAY:QD
     Route: 058
     Dates: start: 20171120
  6. TEDUGLUTIDE [Suspect]
     Active Substance: TEDUGLUTIDE
     Indication: DIARRHOEA
     Dosage: 0.3850 UNIT UNK, 1X/DAY:QD
     Route: 058
     Dates: start: 20171120
  7. TEDUGLUTIDE [Suspect]
     Active Substance: TEDUGLUTIDE
     Indication: DIARRHOEA
     Dosage: 0.3850 UNIT UNK, 1X/DAY:QD
     Route: 058
     Dates: start: 20171120
  8. TEDUGLUTIDE [Suspect]
     Active Substance: TEDUGLUTIDE
     Indication: MALABSORPTION
     Dosage: 3.8 MILLIGRAM, FIVE TIMES WEEKLY
     Route: 058
     Dates: start: 20171205
  9. TEDUGLUTIDE [Suspect]
     Active Substance: TEDUGLUTIDE
     Dosage: 3.8 MILLIGRAM,5/WEEK
     Route: 058
  10. TEDUGLUTIDE [Suspect]
     Active Substance: TEDUGLUTIDE
     Indication: SHORT-BOWEL SYNDROME
     Dosage: 3.8 MILLIGRAM, 5/WEEK
     Route: 058
     Dates: start: 20171107
  11. TEDUGLUTIDE [Suspect]
     Active Substance: TEDUGLUTIDE
     Indication: SHORT-BOWEL SYNDROME
     Dosage: 3.8 MILLIGRAM, 5/WEEK
     Route: 058
     Dates: start: 20171107
  12. TEDUGLUTIDE [Suspect]
     Active Substance: TEDUGLUTIDE
     Indication: SHORT-BOWEL SYNDROME
     Dosage: 3.8 MILLIGRAM, 5/WEEK
     Route: 058
     Dates: start: 20171107
  13. TEDUGLUTIDE [Suspect]
     Active Substance: TEDUGLUTIDE
     Indication: MALABSORPTION
     Dosage: 3.8 MILLIGRAM, FIVE TIMES WEEKLY
     Route: 058
     Dates: start: 20171205
  14. TEDUGLUTIDE [Suspect]
     Active Substance: TEDUGLUTIDE
     Indication: MALABSORPTION
     Dosage: 3.8 MILLIGRAM, FIVE TIMES WEEKLY
     Route: 058
     Dates: start: 20171205
  15. TEDUGLUTIDE [Suspect]
     Active Substance: TEDUGLUTIDE
     Dosage: 3.8 MILLIGRAM,5/WEEK
     Route: 058
  16. TEDUGLUTIDE [Suspect]
     Active Substance: TEDUGLUTIDE
     Dosage: 3.8 MILLIGRAM,5/WEEK
     Route: 058

REACTIONS (21)
  - Fungal infection [Recovering/Resolving]
  - Pouchitis [Unknown]
  - Intestinal obstruction [Recovered/Resolved]
  - Pain [Unknown]
  - Cholelithiasis [Recovered/Resolved with Sequelae]
  - Poor personal hygiene [Unknown]
  - Drug tolerance [Unknown]
  - Pyrexia [Recovering/Resolving]
  - Gastrointestinal bacterial overgrowth [Unknown]
  - Urinary tract infection [Recovering/Resolving]
  - Weight decreased [Recovering/Resolving]
  - Malnutrition [Unknown]
  - Bladder obstruction [Recovering/Resolving]
  - Thrombosis [Recovering/Resolving]
  - Intentional product use issue [Unknown]
  - Inappropriate schedule of product administration [Unknown]
  - Inability to afford medication [Unknown]
  - Off label use [Unknown]
  - Sepsis [Recovering/Resolving]
  - Renal disorder [Recovering/Resolving]
  - Decreased appetite [Not Recovered/Not Resolved]

NARRATIVE: CASE EVENT DATE: 20191231
